FAERS Safety Report 23766785 (Version 1)
Quarter: 2024Q2

REPORT INFORMATION
  Report Type: Spontaneous
  Country: CN (occurrence: CN)
  Receive Date: 20240422
  Receipt Date: 20240422
  Transmission Date: 20240715
  Serious: Yes (Other)
  Sender: FDA-Public Use
  Company Number: CN-BAYER-2024A058197

PATIENT
  Age: 68 Year
  Sex: Male
  Weight: 72 kg

DRUGS (1)
  1. XARELTO [Suspect]
     Active Substance: RIVAROXABAN
     Indication: Atrial fibrillation
     Dosage: 15 MG, QD
     Route: 048
     Dates: start: 20240301

REACTIONS (5)
  - Basal ganglia haemorrhage [Recovering/Resolving]
  - Altered state of consciousness [Unknown]
  - Seizure [Recovered/Resolved]
  - Prescribed underdose [Unknown]
  - Underdose [Unknown]

NARRATIVE: CASE EVENT DATE: 20240301
